FAERS Safety Report 5399226-2 (Version None)
Quarter: 2007Q3

REPORT INFORMATION
  Report Type: 
  Country: None (occurrence: None)
  Receive Date: 20070727
  Receipt Date: 20070718
  Transmission Date: 20080115
  Serious: Yes (Hospitalization)
  Sender: FDA-Public Use
  Company Number: GB-AMGEN-US231052

PATIENT
  Sex: Female
  Weight: 76 kg

DRUGS (8)
  1. ENBREL [Suspect]
     Indication: RHEUMATOID ARTHRITIS
     Route: 058
     Dates: start: 20030623, end: 20070101
  2. CALCICHEW [Concomitant]
     Dosage: UNKNOWN
     Route: 065
  3. ZOPICLONE [Concomitant]
     Dosage: UNKNOWN
     Route: 065
  4. MESALAZINE [Concomitant]
     Dosage: UNKNOWN
     Route: 065
  5. PROPRANOLOL [Concomitant]
     Dosage: UNKNOWN
     Route: 065
  6. SIMVASTATIN [Concomitant]
     Dosage: UNKNOWN
     Route: 065
  7. PREDNISOLONE [Concomitant]
     Dosage: UNKNOWN
     Route: 065
  8. LIQUIFILM TEARS [Concomitant]
     Dosage: UNKNOWN
     Route: 065

REACTIONS (3)
  - CONDITION AGGRAVATED [None]
  - PANNICULITIS [None]
  - RHEUMATOID ARTHRITIS [None]
